FAERS Safety Report 5701608-3 (Version None)
Quarter: 2008Q2

REPORT INFORMATION
  Report Type: 
  Country: None (occurrence: None)
  Receive Date: 20080410
  Receipt Date: 20080410
  Transmission Date: 20081010
  Serious: Yes (Life-Threatening)
  Sender: FDA-Public Use
  Company Number: None

PATIENT
  Sex: Male
  Weight: 59.8748 kg

DRUGS (4)
  1. RIFAMPIN [Suspect]
     Indication: ABDOMINAL INFECTION
     Dosage: 1 PIL 3 TIMES 30 DAYS
  2. RIFAMPIN [Suspect]
     Indication: BACTERIAL INFECTION
     Dosage: 1 PIL 3 TIMES 30 DAYS
  3. DOXYCYCLINE [Suspect]
     Indication: ABDOMINAL INFECTION
     Dosage: 1 TABLET TWICE A DAY 15 DAYS
  4. DOXYCYCLINE [Suspect]
     Indication: BACTERIAL INFECTION
     Dosage: 1 TABLET TWICE A DAY 15 DAYS

REACTIONS (6)
  - ABDOMINAL DISTENSION [None]
  - DRY MOUTH [None]
  - OEDEMA PERIPHERAL [None]
  - PYREXIA [None]
  - RESPIRATORY RATE INCREASED [None]
  - YELLOW SKIN [None]
